FAERS Safety Report 4654877-5 (Version None)
Quarter: 2005Q2

REPORT INFORMATION
  Report Type: 
  Country: None (occurrence: None)
  Receive Date: 20050505
  Receipt Date: 20050502
  Transmission Date: 20051028
  Serious: Yes (Death)
  Sender: FDA-Public Use
  Company Number: 05-05-0725

PATIENT
  Age: 33 Year
  Sex: Female

DRUGS (1)
  1. CLOZAPINE [Suspect]
     Indication: BIPOLAR DISORDER
     Dosage: 400-500MG QD ORAL
     Route: 048
     Dates: start: 20001201, end: 20050301

REACTIONS (1)
  - RESPIRATORY FAILURE [None]
